FAERS Safety Report 20372539 (Version 1)
Quarter: 2022Q1

REPORT INFORMATION
  Report Type: Other
  Country: BE (occurrence: None)
  Receive Date: 20220125
  Receipt Date: 20220125
  Transmission Date: 20220424
  Serious: Yes (Other)
  Sender: FDA-Public Use
  Company Number: BE-ROCHE-2850045

PATIENT
  Age: 85 Year
  Sex: Male

DRUGS (1)
  1. POLIVY [Suspect]
     Active Substance: POLATUZUMAB VEDOTIN-PIIQ
     Indication: Diffuse large B-cell lymphoma
     Route: 042
     Dates: start: 20210521, end: 20210610

REACTIONS (2)
  - Orthostatic hypotension [Recovered/Resolved]
  - Parkinson^s disease [Unknown]

NARRATIVE: CASE EVENT DATE: 20210610
